FAERS Safety Report 6638521-3 (Version None)
Quarter: 2010Q1

REPORT INFORMATION
  Report Type: 
  Country: None (occurrence: None)
  Receive Date: 20100317
  Receipt Date: 20100305
  Transmission Date: 20100710
  Serious: Yes (Other)
  Sender: FDA-Public Use
  Company Number: US-ELI_LILLY_AND_COMPANY-US200908003801

PATIENT
  Sex: Female
  Weight: 68.027 kg

DRUGS (1)
  1. BYETTA [Suspect]
     Dosage: UNK, UNKNOWN
     Route: 065
     Dates: start: 20051201, end: 20080508

REACTIONS (2)
  - PANCREATITIS [None]
  - PANCREATITIS CHRONIC [None]
